FAERS Safety Report 6782950-4 (Version None)
Quarter: 2010Q2

REPORT INFORMATION
  Report Type: 
  Country: None (occurrence: None)
  Receive Date: 20100622
  Receipt Date: 20100614
  Transmission Date: 20101027
  Serious: Yes (Other)
  Sender: FDA-Public Use
  Company Number: FR-WYE-H15719010

PATIENT

DRUGS (2)
  1. METHOTREXATE [Interacting]
     Indication: CHEMOTHERAPY
     Dosage: HIGH DOSE METHOTREXATE (MEAN DOSE: 4,700 MG; RANGE: 160 - 12,350 MG)
  2. PANTOPRAZOLE [Suspect]

REACTIONS (2)
  - CHEMOTHERAPEUTIC DRUG LEVEL INCREASED [None]
  - DRUG INTERACTION [None]
